FAERS Safety Report 20959666 (Version 2)
Quarter: 2022Q3

REPORT INFORMATION
  Report Type: Report from Study
  Country: CA (occurrence: CA)
  Receive Date: 20220614
  Receipt Date: 20220704
  Transmission Date: 20221027
  Serious: Yes (Other)
  Sender: FDA-Public Use
  Company Number: CA-ABBVIE-22K-028-4339068-00

PATIENT
  Sex: Female

DRUGS (1)
  1. RINVOQ [Suspect]
     Active Substance: UPADACITINIB
     Indication: Dermatitis atopic
     Route: 048
     Dates: start: 20220301, end: 2022

REACTIONS (10)
  - Loss of consciousness [Recovered/Resolved]
  - Syncope [Unknown]
  - Panic attack [Unknown]
  - Chills [Unknown]
  - Urticaria [Recovered/Resolved]
  - Nausea [Unknown]
  - Fatigue [Not Recovered/Not Resolved]
  - Nasopharyngitis [Unknown]
  - Unevaluable event [Unknown]
  - Presyncope [Unknown]

NARRATIVE: CASE EVENT DATE: 20220101
